FAERS Safety Report 24263763 (Version 1)
Quarter: 2024Q3

REPORT INFORMATION
  Report Type: Spontaneous
  Country: CN (occurrence: CN)
  Receive Date: 20240829
  Receipt Date: 20240829
  Transmission Date: 20241016
  Serious: Yes (Life-Threatening, Other)
  Sender: PFIZER
  Company Number: CN-PFIZER INC-PV202400111374

PATIENT
  Age: 58 Year
  Sex: Female
  Weight: 48.5 kg

DRUGS (4)
  1. DACOMITINIB [Suspect]
     Active Substance: DACOMITINIB
     Indication: Neoplasm
     Dosage: 45 MG, 1X/DAY
     Route: 048
     Dates: start: 20240626, end: 20240720
  2. DACOMITINIB [Suspect]
     Active Substance: DACOMITINIB
     Indication: Lung adenocarcinoma
  3. BEVACIZUMAB [Concomitant]
     Active Substance: BEVACIZUMAB
     Indication: Neoplasm
     Dosage: 400 MG, 1X/DAY
     Route: 041
     Dates: start: 20240626, end: 20240626
  4. BEVACIZUMAB [Concomitant]
     Active Substance: BEVACIZUMAB
     Indication: Lung adenocarcinoma
     Dosage: 400 MG, 1X/DAY
     Route: 041
     Dates: start: 20240719, end: 20240719

REACTIONS (3)
  - Drug eruption [Recovering/Resolving]
  - Dizziness [Unknown]
  - Pain in extremity [Unknown]

NARRATIVE: CASE EVENT DATE: 20240101
